FAERS Safety Report 5431373-9 (Version None)
Quarter: 2007Q3

REPORT INFORMATION
  Report Type: 
  Country: None (occurrence: None)
  Receive Date: 20070830
  Receipt Date: 20070511
  Transmission Date: 20080115
  Serious: No
  Sender: FDA-Public Use
  Company Number: A0651027A

PATIENT
  Age: 63 Year
  Sex: Male

DRUGS (3)
  1. WELLBUTRIN XL [Suspect]
     Indication: DEPRESSION
     Dosage: 150MG PER DAY
     Route: 048
  2. NEURONTIN [Concomitant]
  3. COGENTIN [Concomitant]

REACTIONS (4)
  - DRY MOUTH [None]
  - GYNAECOMASTIA [None]
  - MUSCULOSKELETAL STIFFNESS [None]
  - TINNITUS [None]
